FAERS Safety Report 5963164-4 (Version None)
Quarter: 2008Q4

REPORT INFORMATION
  Report Type: 
  Country: None (occurrence: None)
  Receive Date: 20081124
  Receipt Date: 20081113
  Transmission Date: 20090506
  Serious: Yes (Other)
  Sender: FDA-Public Use
  Company Number: GB-AMGEN-US319294

PATIENT
  Sex: Male

DRUGS (3)
  1. ENBREL [Suspect]
     Indication: DRUG USE FOR UNKNOWN INDICATION
     Dosage: UNKNOWN
  2. PREDNISOLONE [Concomitant]
     Dosage: UNKNOWN
  3. METHOTREXATE [Concomitant]
     Dosage: UNKNOWN

REACTIONS (2)
  - DEVICE RELATED INFECTION [None]
  - KNEE ARTHROPLASTY [None]
